FAERS Safety Report 6706302-8 (Version None)
Quarter: 2010Q2

REPORT INFORMATION
  Report Type: 
  Country: None (occurrence: None)
  Receive Date: 20100423
  Receipt Date: 20100121
  Transmission Date: 20101027
  Serious: No
  Sender: FDA-Public Use
  Company Number: ALL1-2010-00312

PATIENT
  Age: 43 Year
  Sex: Male

DRUGS (2)
  1. VYVANSE [Suspect]
     Indication: ATTENTION DEFICIT/HYPERACTIVITY DISORDER
     Dosage: 30 MG, 1X/DAY;QD, ORAL; 20 MG, 1X/DAY;QD, ORAL
     Route: 048
     Dates: start: 20100106, end: 20100119
  2. VYVANSE [Suspect]
     Indication: ATTENTION DEFICIT/HYPERACTIVITY DISORDER
     Dosage: 30 MG, 1X/DAY;QD, ORAL; 20 MG, 1X/DAY;QD, ORAL
     Route: 048
     Dates: start: 20100120

REACTIONS (1)
  - TRISMUS [None]
